FAERS Safety Report 9313017 (Version 1)
Quarter: 2013Q2

REPORT INFORMATION
  Report Type: Spontaneous
  Country: US (occurrence: US)
  Receive Date: 20130528
  Receipt Date: 20130528
  Transmission Date: 20140414
  Serious: No
  Sender: FDA-Public Use
  Company Number: US-ABBOTT-13P-163-1076610-00

PATIENT
  Age: 83 Year
  Sex: Male
  Weight: 80.36 kg

DRUGS (3)
  1. ANDROGEL [Suspect]
     Indication: BLOOD TESTOSTERONE DECREASED
     Dosage: 2 PUMPS DAILY
     Route: 061
     Dates: start: 201212, end: 20130410
  2. ANDROGEL [Suspect]
     Indication: ERECTILE DYSFUNCTION
  3. NIFEDIPINE [Concomitant]
     Indication: HYPERTENSION

REACTIONS (3)
  - Erectile dysfunction [Not Recovered/Not Resolved]
  - Drug ineffective [Not Recovered/Not Resolved]
  - Drug dose omission [Not Recovered/Not Resolved]
